FAERS Safety Report 4952124-8 (Version None)
Quarter: 2006Q1

REPORT INFORMATION
  Report Type: 
  Country: None (occurrence: None)
  Receive Date: 20060322
  Receipt Date: 20060322
  Transmission Date: 20060701
  Serious: Yes (Hospitalization, Other)
  Sender: FDA-Public Use
  Company Number: None

PATIENT
  Sex: Female
  Weight: 89.5 kg

DRUGS (8)
  1. CYCLOPHOSPHAMIDE [Suspect]
     Indication: BREAST CANCER
     Dosage: 995 MG
     Dates: start: 20060220
  2. DOXORUBICIN HCL [Suspect]
     Dosage: 100 MG
     Dates: start: 20060220
  3. LIPITOR [Concomitant]
  4. MULTI-VITAMIN [Concomitant]
  5. SENOKOT [Concomitant]
  6. TYLENOL (CAPLET) [Concomitant]
  7. ZOFRAN [Concomitant]
  8. PROTONIX [Concomitant]

REACTIONS (6)
  - ALANINE AMINOTRANSFERASE INCREASED [None]
  - ASPARTATE AMINOTRANSFERASE INCREASED [None]
  - BLOOD ALKALINE PHOSPHATASE INCREASED [None]
  - BLOOD BILIRUBIN INCREASED [None]
  - CONDITION AGGRAVATED [None]
  - HEPATOTOXICITY [None]
